FAERS Safety Report 5320638-7 (Version None)
Quarter: 2007Q1

REPORT INFORMATION
  Report Type: 
  Country: None (occurrence: None)
  Receive Date: 20070220
  Receipt Date: 20061213
  Transmission Date: 20070707
  Serious: No
  Sender: FDA-Public Use
  Company Number: WAES 0612USA02346

PATIENT
  Sex: Female

DRUGS (3)
  1. JANUVIA [Suspect]
     Indication: DIABETES MELLITUS
     Dosage: UNK/AM/PO
     Route: 048
     Dates: start: 20060101
  2. ACTOS [Concomitant]
  3. GLYBURIDE [Concomitant]

REACTIONS (1)
  - HYPOGLYCAEMIA [None]
